FAERS Safety Report 5674805-3 (Version None)
Quarter: 2008Q1

REPORT INFORMATION
  Report Type: 
  Country: None (occurrence: None)
  Receive Date: 20080319
  Receipt Date: 20080319
  Transmission Date: 20080703
  Serious: Yes (Hospitalization)
  Sender: FDA-Public Use
  Company Number: None

PATIENT
  Age: 57 Year
  Sex: Male

DRUGS (2)
  1. WARFARIN SODIUM [Suspect]
     Indication: DEEP VEIN THROMBOSIS
     Dosage: 2MG EVERY DAY PO
     Route: 048
     Dates: start: 20070501, end: 20070518
  2. WARFARIN SODIUM [Suspect]
     Indication: PROTEIN C DEFICIENCY
     Dosage: 2MG EVERY DAY PO
     Route: 048
     Dates: start: 20070501, end: 20070518

REACTIONS (7)
  - ABDOMINAL PAIN [None]
  - ANOREXIA [None]
  - GASTRIC HAEMORRHAGE [None]
  - HAEMORRHAGE [None]
  - INTERNATIONAL NORMALISED RATIO ABNORMAL [None]
  - MELAENA [None]
  - ORAL INTAKE REDUCED [None]
